FAERS Safety Report 4287833-X (Version None)
Quarter: 2004Q1

REPORT INFORMATION
  Report Type: 
  Country: None (occurrence: None)
  Receive Date: 20040205
  Receipt Date: 20040120
  Transmission Date: 20041129
  Serious: Yes (Other)
  Sender: FDA-Public Use
  Company Number: USA030948460

PATIENT
  Age: 78 Year
  Sex: Male

DRUGS (5)
  1. FORTEO [Suspect]
     Dates: start: 20030922
  2. DARVOCET-N 100 [Concomitant]
  3. PERCOCET [Concomitant]
  4. VICODIN [Concomitant]
  5. FOSAMAX [Concomitant]

REACTIONS (5)
  - ABDOMINAL PAIN [None]
  - BACK PAIN [None]
  - COMPRESSION FRACTURE [None]
  - CONSTIPATION [None]
  - GASTROINTESTINAL DISORDER [None]
